FAERS Safety Report 10093613 (Version 1)
Quarter: 2014Q2

REPORT INFORMATION
  Report Type: Spontaneous
  Country: US (occurrence: US)
  Receive Date: 20140421
  Receipt Date: 20140421
  Transmission Date: 20141212
  Serious: No
  Sender: FDA-Public Use
  Company Number: US-SA-2014SA007812

PATIENT
  Age: 61 Year
  Sex: Male

DRUGS (1)
  1. ALLEGRA 24 HOUR [Suspect]
     Indication: HYPERSENSITIVITY
     Route: 048
     Dates: start: 20140116, end: 20140116

REACTIONS (5)
  - Lacrimation increased [Unknown]
  - Nasal discomfort [Unknown]
  - Rhinorrhoea [Unknown]
  - Drug ineffective [Unknown]
  - Eye pruritus [Unknown]
